FAERS Safety Report 8995601 (Version 1)
Quarter: 2013Q1

REPORT INFORMATION
  Report Type: Spontaneous
  Country: US (occurrence: US)
  Receive Date: 20130103
  Receipt Date: 20130103
  Transmission Date: 20140127
  Serious: No
  Sender: FDA-Public Use
  Company Number: US-ABBOTT-12P-163-1018812-00

PATIENT
  Sex: Male

DRUGS (12)
  1. LEVOTHYROXINE [Suspect]
     Indication: HYPOTHYROIDISM
  2. PREVACID [Suspect]
     Indication: GASTRIC DISORDER
  3. CHANTIX [Suspect]
     Indication: EX-TOBACCO USER
     Route: 048
     Dates: start: 2012, end: 20121103
  4. CHANTIX [Suspect]
  5. CHANTIX [Suspect]
  6. LISINOPRIL [Suspect]
     Indication: HYPERTENSION
  7. VALIUM [Suspect]
     Indication: ANXIETY
  8. FENTANYL [Suspect]
     Indication: PAIN
     Dosage: PATCHES
  9. MELOXICAM [Suspect]
     Indication: ARTHRITIS
  10. OXYCONTIN [Suspect]
     Indication: PAIN
  11. ALCOHOL [Suspect]
     Indication: PRODUCT USED FOR UNKNOWN INDICATION
     Dosage: PATCH
  12. ULTRAM [Suspect]
     Indication: PRODUCT USED FOR UNKNOWN INDICATION

REACTIONS (19)
  - Chest pain [Unknown]
  - Hypertension [Unknown]
  - Nausea [Unknown]
  - Headache [Unknown]
  - Decreased appetite [Unknown]
  - Weight decreased [Unknown]
  - Somnolence [Unknown]
  - Asthenia [Unknown]
  - Mobility decreased [Unknown]
  - Activities of daily living impaired [Unknown]
  - Pain [Unknown]
  - Stress [Unknown]
  - Arthritis [Unknown]
  - Ill-defined disorder [Unknown]
  - Eye disorder [Unknown]
  - Drug ineffective [Unknown]
  - Feeling abnormal [Unknown]
  - Drug intolerance [Unknown]
  - Drug ineffective [Unknown]
